FAERS Safety Report 5466741-2 (Version None)
Quarter: 2007Q3

REPORT INFORMATION
  Report Type: 
  Country: None (occurrence: None)
  Receive Date: 20070924
  Receipt Date: 20070924
  Transmission Date: 20080115
  Serious: Yes (Other)
  Sender: FDA-Public Use
  Company Number: None

PATIENT
  Age: 52 Year
  Sex: Female

DRUGS (1)
  1. BI-EST/PROGEST CREAM 2.5MG/3% [Suspect]
     Dosage: APPLY 1 GRAM DAILY
     Dates: start: 20070418, end: 20070921

REACTIONS (4)
  - DYSPNOEA [None]
  - HEADACHE [None]
  - MUSCULAR WEAKNESS [None]
  - PRURITUS [None]
